FAERS Safety Report 4277841-7 (Version None)
Quarter: 2004Q1

REPORT INFORMATION
  Report Type: 
  Country: None (occurrence: None)
  Receive Date: 20040121
  Receipt Date: 20030709
  Transmission Date: 20041129
  Serious: Yes (Death, Other)
  Sender: FDA-Public Use
  Company Number: 2003-07-0569

PATIENT
  Sex: Female

DRUGS (5)
  1. SUBUTEX [Suspect]
     Route: 060
     Dates: end: 20030201
  2. TERCIAN TABLETS [Suspect]
     Route: 048
     Dates: end: 20030201
  3. LAROXYL TABLETS [Suspect]
     Route: 048
     Dates: end: 20030201
  4. COCAINE [Concomitant]
  5. CANNIBAS [Concomitant]

REACTIONS (3)
  - DRUG INTERACTION [None]
  - DRUG SCREEN POSITIVE [None]
  - TOXICOLOGIC TEST ABNORMAL [None]
